FAERS Safety Report 18072225 (Version 1)
Quarter: 2020Q3

REPORT INFORMATION
  Report Type: Spontaneous
  Country: US (occurrence: US)
  Receive Date: 20200726
  Receipt Date: 20200726
  Transmission Date: 20201103
  Serious: Yes (Other)
  Sender: FDA-Public Use
  Company Number: None

PATIENT
  Age: 2 Year
  Weight: 13.5 kg

DRUGS (1)
  1. MIRALAX [Suspect]
     Active Substance: POLYETHYLENE GLYCOL 3350
     Indication: CONSTIPATION
     Route: 048
     Dates: start: 20200713, end: 20200720

REACTIONS (6)
  - Anger [None]
  - Insomnia [None]
  - Fear [None]
  - Mood altered [None]
  - Screaming [None]
  - Abdominal pain upper [None]

NARRATIVE: CASE EVENT DATE: 20200713
